FAERS Safety Report 17037223 (Version 4)
Quarter: 2019Q4

REPORT INFORMATION
  Report Type: Spontaneous
  Country: US (occurrence: US)
  Receive Date: 20191115
  Receipt Date: 20191202
  Transmission Date: 20200122
  Serious: No
  Sender: FDA-Public Use
  Company Number: US-PFIZER INC-2019492098

PATIENT
  Age: 55 Year
  Sex: Female

DRUGS (1)
  1. FLECTOR [Suspect]
     Active Substance: DICLOFENAC EPOLAMINE
     Indication: PAIN
     Dosage: UNK, 1X/DAY

REACTIONS (2)
  - Road traffic accident [Unknown]
  - Concussion [Unknown]

NARRATIVE: CASE EVENT DATE: 2019
